FAERS Safety Report 26137910 (Version 1)
Quarter: 2025Q4

REPORT INFORMATION
  Report Type: Spontaneous
  Country: EU (occurrence: EU)
  Receive Date: 20251210
  Receipt Date: 20251210
  Transmission Date: 20260118
  Serious: Yes (Other)
  Sender: ORPHALAN
  Company Number: EU-ORPHALAN-FR-ORP-25-00289

PATIENT

DRUGS (1)
  1. TRIENTINE TETRAHYDROCHLORIDE [Suspect]
     Active Substance: TRIENTINE TETRAHYDROCHLORIDE
     Indication: Hepato-lenticular degeneration
     Dosage: 7 TABLETS / DAY
     Route: 065
     Dates: end: 202508

REACTIONS (3)
  - Hepatic cytolysis [Unknown]
  - Blood copper increased [Unknown]
  - Off label use [Unknown]
